FAERS Safety Report 11539548 (Version 1)
Quarter: 2015Q3

REPORT INFORMATION
  Report Type: Spontaneous
  Country: US (occurrence: None)
  Receive Date: 20150922
  Receipt Date: 20150922
  Transmission Date: 20151125
  Serious: Yes (Disabling, Other)
  Sender: FDA-Public Use
  Company Number: None

PATIENT
  Age: 64 Year
  Sex: Female
  Weight: 53.52 kg

DRUGS (11)
  1. ZANAFLEX [Concomitant]
     Active Substance: TIZANIDINE HYDROCHLORIDE
  2. TECFIDERA [Suspect]
     Active Substance: DIMETHYL FUMARATE
     Indication: MULTIPLE SCLEROSIS
     Dosage: BY MOUTH
     Dates: start: 20140913, end: 20150408
  3. RESTASIS [Concomitant]
     Active Substance: CYCLOSPORINE
  4. MAGNESIUM [Concomitant]
     Active Substance: MAGNESIUM
  5. CALCIUM [Concomitant]
     Active Substance: CALCIUM
  6. BACLOFEN. [Concomitant]
     Active Substance: BACLOFEN
  7. PROLIA [Concomitant]
     Active Substance: DENOSUMAB
  8. LYRICA [Concomitant]
     Active Substance: PREGABALIN
  9. IDROPAQUE [Concomitant]
  10. VITAMIN D [Concomitant]
     Active Substance: CHOLECALCIFEROL
  11. KRILL OIL [Concomitant]
     Active Substance: DIETARY SUPPLEMENT

REACTIONS (2)
  - Squamous cell carcinoma [None]
  - Lymphopenia [None]

NARRATIVE: CASE EVENT DATE: 201412
